FAERS Safety Report 20146463 (Version 1)
Quarter: 2021Q4

REPORT INFORMATION
  Report Type: Spontaneous
  Country: US (occurrence: None)
  Receive Date: 20211203
  Receipt Date: 20211203
  Transmission Date: 20220303
  Serious: Yes (Death, Hospitalization, Other)
  Sender: FDA-Public Use
  Company Number: None

PATIENT
  Age: 56 Year
  Sex: Male
  Weight: 86 kg

DRUGS (1)
  1. MAVYRET [Suspect]
     Active Substance: GLECAPREVIR\PIBRENTASVIR
     Indication: Hepatitis C
     Dosage: FREQUENCY : DAILY;?
     Route: 048

REACTIONS (12)
  - Jaundice [None]
  - Haematemesis [None]
  - Hypotension [None]
  - Mental status changes [None]
  - Multiple organ dysfunction syndrome [None]
  - Varices oesophageal [None]
  - Thrombosis [None]
  - Respiratory failure [None]
  - Anaemia [None]
  - Hepatitis alcoholic [None]
  - Obstruction [None]
  - Neoplasm [None]

NARRATIVE: CASE EVENT DATE: 20211103
